FAERS Safety Report 10266310 (Version 1)
Quarter: 2014Q2

REPORT INFORMATION
  Report Type: Spontaneous
  Country: US (occurrence: US)
  Receive Date: 20140627
  Receipt Date: 20140627
  Transmission Date: 20141212
  Serious: No
  Sender: FDA-Public Use
  Company Number: US-009507513-1406USA011436

PATIENT
  Age: 24 Year
  Sex: Female
  Weight: 80.73 kg

DRUGS (1)
  1. NEXPLANON [Suspect]
     Indication: CONTRACEPTION
     Dosage: 68 MG, ONCE EVERY 3 YEAR
     Route: 023
     Dates: start: 20140530

REACTIONS (3)
  - Device expulsion [Unknown]
  - Infection [Recovered/Resolved]
  - Implant site discharge [Recovered/Resolved]
